FAERS Safety Report 14089448 (Version 2)
Quarter: 2018Q3

REPORT INFORMATION
  Report Type: Spontaneous
  Country: US (occurrence: US)
  Receive Date: 20171014
  Receipt Date: 20180913
  Transmission Date: 20181010
  Serious: Yes (Other)
  Sender: FDA-Public Use
  Company Number: US-SA-2017SA159798

PATIENT
  Sex: Female

DRUGS (1)
  1. AUBAGIO [Suspect]
     Active Substance: TERIFLUNOMIDE
     Indication: MULTIPLE SCLEROSIS
     Dosage: 14 MG,QD
     Route: 048
     Dates: start: 2016

REACTIONS (9)
  - Multiple sclerosis [Unknown]
  - Drug ineffective [Unknown]
  - Decreased interest [Unknown]
  - Memory impairment [Unknown]
  - Hypoaesthesia [Unknown]
  - Multiple sclerosis relapse [Unknown]
  - Musculoskeletal stiffness [Unknown]
  - Depression [Unknown]
  - Depressed mood [Unknown]
